FAERS Safety Report 23178312 (Version 2)
Quarter: 2023Q4

REPORT INFORMATION
  Report Type: Report from Study
  Country: CA (occurrence: CA)
  Receive Date: 20231113
  Receipt Date: 20231128
  Transmission Date: 20240110
  Serious: Yes (Other)
  Sender: FDA-Public Use
  Company Number: CA-JNJFOC-20231048410

PATIENT
  Age: 11 Year
  Sex: Female

DRUGS (5)
  1. MACITENTAN [Suspect]
     Active Substance: MACITENTAN
     Indication: Pulmonary hypertension
     Route: 048
  2. SELEXIPAG [Suspect]
     Active Substance: SELEXIPAG
     Indication: Pulmonary hypertension
     Route: 048
     Dates: start: 20201221
  3. SELEXIPAG [Suspect]
     Active Substance: SELEXIPAG
     Route: 048
     Dates: start: 20230629
  4. TADALAFIL [Concomitant]
     Active Substance: TADALAFIL
  5. OXYGEN [Concomitant]
     Active Substance: OXYGEN

REACTIONS (5)
  - Loss of consciousness [Unknown]
  - Syncope [Not Recovered/Not Resolved]
  - Blood glucose decreased [Recovering/Resolving]
  - Off label use [Unknown]
  - Nausea [Unknown]
